FAERS Safety Report 6540585-2 (Version None)
Quarter: 2010Q1

REPORT INFORMATION
  Report Type: 
  Country: None (occurrence: None)
  Receive Date: 20100112
  Receipt Date: 20091013
  Transmission Date: 20100710
  Serious: No
  Sender: FDA-Public Use
  Company Number: 2009-00677

PATIENT
  Age: 57 Year
  Sex: Female
  Weight: 92.9874 kg

DRUGS (6)
  1. COLD REMEDY GEL SWABS [Suspect]
     Dosage: QID - 'A FEW DAYS^
     Dates: start: 20090501, end: 20090501
  2. ACURETIC [Concomitant]
  3. PRILOSEC [Concomitant]
  4. METOPROLOL [Concomitant]
  5. ASPIRIN [Concomitant]
  6. MULTI-VITAMIN [Concomitant]

REACTIONS (2)
  - AGEUSIA [None]
  - ANOSMIA [None]
